FAERS Safety Report 9496903 (Version 2)
Quarter: 2013Q3

REPORT INFORMATION
  Report Type: Spontaneous
  Country: US (occurrence: US)
  Receive Date: 20130904
  Receipt Date: 20130924
  Transmission Date: 20140515
  Serious: Yes (Other)
  Sender: FDA-Public Use
  Company Number: US-BAYER-2013-106564

PATIENT
  Age: 19 Year
  Sex: Female
  Weight: 74 kg

DRUGS (1)
  1. MIRENA [Suspect]
     Indication: CONTRACEPTION
     Dosage: 20 ?G/D, CONT
     Route: 015
     Dates: start: 20130802

REACTIONS (5)
  - Embedded device [Recovered/Resolved]
  - Pelvic haemorrhage [Recovered/Resolved]
  - Complication of device insertion [Recovered/Resolved]
  - Genital haemorrhage [None]
  - Abdominal pain [Recovered/Resolved]
